FAERS Safety Report 24284749 (Version 1)
Quarter: 2024Q3

REPORT INFORMATION
  Report Type: Spontaneous
  Country: US (occurrence: US)
  Receive Date: 20240905
  Receipt Date: 20240905
  Transmission Date: 20241017
  Serious: Yes (Hospitalization, Other)
  Sender: CSL BEHRING
  Company Number: US-BEH-2024177833

PATIENT
  Age: 25 Year
  Sex: Female

DRUGS (2)
  1. BERINERT [Suspect]
     Active Substance: HUMAN C1-ESTERASE INHIBITOR
     Indication: Hereditary angioedema
     Dosage: 3000 IU, PRN
     Route: 042
  2. BERINERT [Suspect]
     Active Substance: HUMAN C1-ESTERASE INHIBITOR
     Indication: Hereditary angioedema
     Dosage: 3000 IU, PRN
     Route: 042

REACTIONS (7)
  - Hereditary angioedema [Unknown]
  - Hereditary angioedema [Unknown]
  - Swelling face [Unknown]
  - Abdominal distension [Unknown]
  - Peripheral swelling [Unknown]
  - Peripheral swelling [Unknown]
  - Colitis [Unknown]

NARRATIVE: CASE EVENT DATE: 20240101
